FAERS Safety Report 16726589 (Version 1)
Quarter: 2019Q3

REPORT INFORMATION
  Report Type: Spontaneous
  Country: US (occurrence: US)
  Receive Date: 20190821
  Receipt Date: 20190821
  Transmission Date: 20191005
  Serious: Yes (Other)
  Sender: FDA-Public Use
  Company Number: US-GLAXOSMITHKLINE-US2019149345

PATIENT
  Sex: Female

DRUGS (2)
  1. COREG [Suspect]
     Active Substance: CARVEDILOL
     Indication: PRODUCT USED FOR UNKNOWN INDICATION
     Dosage: 50 MG, BID
     Route: 048
  2. CARVEDILOL. [Suspect]
     Active Substance: CARVEDILOL
     Indication: PRODUCT USED FOR UNKNOWN INDICATION
     Dosage: UNK
     Route: 048

REACTIONS (6)
  - Myocardial infarction [Recovered/Resolved]
  - Stent placement [Not Recovered/Not Resolved]
  - Hot flush [Recovered/Resolved]
  - Cerebrovascular accident [Recovered/Resolved]
  - Carotid artery disease [Not Recovered/Not Resolved]
  - Coronary arterial stent insertion [Not Recovered/Not Resolved]
